FAERS Safety Report 7961084-7 (Version None)
Quarter: 2011Q4

REPORT INFORMATION
  Report Type: 
  Country: None (occurrence: None)
  Receive Date: 20111207
  Receipt Date: 20111201
  Transmission Date: 20120403
  Serious: No
  Sender: FDA-Public Use
  Company Number: US-MUTUAL PHARMACEUTICAL COMPANY, INC.-CLHC20110051

PATIENT
  Age: 35 Year
  Sex: Male

DRUGS (2)
  1. COLCHICINE [Suspect]
     Indication: GOUT
     Route: 065
  2. NITROUS OXIDE [Suspect]
     Indication: SUBSTANCE USE

REACTIONS (2)
  - MYELOPATHY [None]
  - VITAMIN B12 DEFICIENCY [None]
